FAERS Safety Report 5728196-X (Version None)
Quarter: 2008Q2

REPORT INFORMATION
  Report Type: 
  Country: None (occurrence: None)
  Receive Date: 20080501
  Receipt Date: 20080428
  Transmission Date: 20081010
  Serious: Yes (Other)
  Sender: FDA-Public Use
  Company Number: 200804021

PATIENT
  Age: 53 Year
  Sex: Male
  Weight: 136 kg

DRUGS (8)
  1. TESTIM [Suspect]
     Indication: BLOOD TESTOSTERONE DECREASED
     Dosage: TRANSDERMAL
     Route: 062
  2. ANDROGEL [Suspect]
     Indication: BLOOD TESTOSTERONE DECREASED
     Dosage: 5.0 GRAMS, DAILY VIA PUMP; 7.5 GRAMS, DAILY VIA PUMP,; 5 GRAMS, DAILY, VIA PUMP
     Dates: start: 20070401, end: 20070701
  3. ANDROGEL [Suspect]
     Indication: BLOOD TESTOSTERONE DECREASED
     Dosage: 5.0 GRAMS, DAILY VIA PUMP; 7.5 GRAMS, DAILY VIA PUMP,; 5 GRAMS, DAILY, VIA PUMP
     Dates: start: 20070701, end: 20080401
  4. ANDROGEL [Suspect]
     Indication: BLOOD TESTOSTERONE DECREASED
     Dosage: 5.0 GRAMS, DAILY VIA PUMP; 7.5 GRAMS, DAILY VIA PUMP,; 5 GRAMS, DAILY, VIA PUMP
     Dates: start: 20080401
  5. BENICAR [Concomitant]
  6. LEVITRA [Concomitant]
  7. SYNTHROID [Concomitant]
  8. ANDRODERM [Suspect]
     Indication: BLOOD TESTOSTERONE DECREASED

REACTIONS (5)
  - ACROMEGALY [None]
  - CONDITION AGGRAVATED [None]
  - ERECTILE DYSFUNCTION [None]
  - NEOPLASM RECURRENCE [None]
  - PITUITARY TUMOUR [None]
